FAERS Safety Report 21197051 (Version 2)
Quarter: 2022Q3

REPORT INFORMATION
  Report Type: Spontaneous
  Country: GB (occurrence: GB)
  Receive Date: 20220810
  Receipt Date: 20220815
  Transmission Date: 20221026
  Serious: Yes (Other)
  Sender: FDA-Public Use
  Company Number: None

PATIENT
  Age: 42 Year
  Sex: Female
  Weight: 72 kg

DRUGS (5)
  1. RAMIPRIL [Suspect]
     Active Substance: RAMIPRIL
     Indication: Product used for unknown indication
     Dosage: UNK
     Route: 065
  2. CANDESARTAN [Suspect]
     Active Substance: CANDESARTAN
     Indication: Product used for unknown indication
     Dosage: UNK
     Route: 065
  3. PFIZER-BIONTECH COVID-19 VACCINE [Suspect]
     Active Substance: TOZINAMERAN
     Indication: COVID-19 immunisation
     Dosage: 1 DOSAGE FORM (DOSE 3)
     Route: 065
     Dates: start: 20211211, end: 20211211
  4. ASTRAZENECA COVID-19 VACCINE [Concomitant]
     Active Substance: AZD-1222
     Indication: COVID-19 immunisation
     Dosage: 1 DOSAGE FORM (DOSE 1)
     Route: 065
     Dates: start: 20210426, end: 20210426
  5. ASTRAZENECA COVID-19 VACCINE [Concomitant]
     Active Substance: AZD-1222
     Dosage: 1 DOSAGE FORM (DOSE 2)
     Route: 065
     Dates: start: 20210625, end: 20210625

REACTIONS (22)
  - COVID-19 [Recovered/Resolved with Sequelae]
  - Chapped lips [Unknown]
  - Peripheral swelling [Unknown]
  - Lip dry [Unknown]
  - Urinary tract infection [Unknown]
  - Hypertension [Recovering/Resolving]
  - Abnormal weight gain [Unknown]
  - Feeling abnormal [Unknown]
  - Tachyphrenia [Unknown]
  - Migraine [Unknown]
  - Chromaturia [Unknown]
  - Burning sensation [Unknown]
  - Vision blurred [Recovering/Resolving]
  - Alopecia [Unknown]
  - Angioedema [Unknown]
  - Dysgeusia [Unknown]
  - Palpitations [Recovering/Resolving]
  - Anxiety [Unknown]
  - Headache [Unknown]
  - Fatigue [Unknown]
  - Pruritus [Recovering/Resolving]
  - Lip pruritus [Unknown]

NARRATIVE: CASE EVENT DATE: 20211211
